FAERS Safety Report 15622517 (Version 1)
Quarter: 2018Q4

REPORT INFORMATION
  Report Type: Spontaneous
  Country: US (occurrence: US)
  Receive Date: 20181115
  Receipt Date: 20181115
  Transmission Date: 20190205
  Serious: No
  Sender: FDA-Public Use
  Company Number: US-B.I. PHARMACEUTICALS,INC./RIDGEFIELD-2018-BI-055922

PATIENT
  Age: 71 Year
  Sex: Male

DRUGS (4)
  1. TAMSULOSINA [Suspect]
     Active Substance: TAMSULOSIN HYDROCHLORIDE
     Indication: MICTURITION URGENCY
     Route: 065
  2. TAMSULOSINA [Suspect]
     Active Substance: TAMSULOSIN HYDROCHLORIDE
     Indication: POLLAKIURIA
  3. ALFUZOSIN [Suspect]
     Active Substance: ALFUZOSIN
     Indication: MICTURITION URGENCY
     Route: 065
  4. ALFUZOSIN [Suspect]
     Active Substance: ALFUZOSIN
     Indication: POLLAKIURIA

REACTIONS (1)
  - Drug ineffective [Unknown]
